FAERS Safety Report 10494240 (Version 1)
Quarter: 2014Q4

REPORT INFORMATION
  Report Type: Spontaneous
  Country: US (occurrence: US)
  Receive Date: 20141003
  Receipt Date: 20141003
  Transmission Date: 20150528
  Serious: Yes (Hospitalization)
  Sender: FDA-Public Use
  Company Number: US-GLAXOSMITHKLINE-A1090428A

PATIENT
  Age: 59 Year
  Sex: Female

DRUGS (26)
  1. ZITHROMAX [Concomitant]
     Active Substance: AZITHROMYCIN DIHYDRATE
  2. PULMICORT TURBUHALER [Concomitant]
     Active Substance: BUDESONIDE
     Route: 055
  3. IMMUNE GLOBULIN [Concomitant]
     Active Substance: HUMAN IMMUNOGLOBULIN G
     Route: 042
  4. CALCIUM [Concomitant]
     Active Substance: CALCIUM
  5. MELATONIN [Concomitant]
     Active Substance: MELATONIN
  6. SYNTHROID [Concomitant]
     Active Substance: LEVOTHYROXINE SODIUM
  7. MULTIVITAMINS [Concomitant]
     Active Substance: VITAMINS
  8. FIBER [Concomitant]
     Active Substance: PSYLLIUM HUSK
  9. ADVAIR HFA [Suspect]
     Active Substance: FLUTICASONE PROPIONATE\SALMETEROL XINAFOATE
     Indication: CHRONIC OBSTRUCTIVE PULMONARY DISEASE
     Dosage: 1PUFF PER DAY
     Route: 055
     Dates: start: 201307, end: 201312
  10. PERIACTIN [Concomitant]
     Active Substance: CYPROHEPTADINE HYDROCHLORIDE
  11. VENTOLIN HFA [Concomitant]
     Active Substance: ALBUTEROL SULFATE
  12. BREO ELLIPTA [Suspect]
     Active Substance: FLUTICASONE FUROATE\VILANTEROL TRIFENATATE
     Indication: CHRONIC OBSTRUCTIVE PULMONARY DISEASE
     Dosage: 1PUFF PER DAY
     Route: 055
     Dates: start: 20140811, end: 20140828
  13. LASIX [Concomitant]
     Active Substance: FUROSEMIDE
  14. NEXIUM [Concomitant]
     Active Substance: ESOMEPRAZOLE MAGNESIUM
  15. METFORMIN [Concomitant]
     Active Substance: METFORMIN HYDROCHLORIDE
  16. VITAMIN D [Concomitant]
     Active Substance: CHOLECALCIFEROL
  17. ANORO ELLIPTA [Suspect]
     Active Substance: UMECLIDINIUM BROMIDE\VILANTEROL TRIFENATATE
     Indication: CHRONIC OBSTRUCTIVE PULMONARY DISEASE
     Dosage: 1PUFF PER DAY
     Route: 055
     Dates: start: 20140917
  18. TOPAMAX [Concomitant]
     Active Substance: TOPIRAMATE
  19. CEVIMELINE HYDROCHLORIDE. [Concomitant]
     Active Substance: CEVIMELINE HYDROCHLORIDE
  20. TESSALON [Concomitant]
     Active Substance: BENZONATATE
  21. PREDNISONE. [Concomitant]
     Active Substance: PREDNISONE
  22. DALIRESP [Concomitant]
     Active Substance: ROFLUMILAST
  23. ALBUTEROL/IPRATROPIUM [Concomitant]
     Active Substance: ALBUTEROL\IPRATROPIUM
     Route: 055
  24. DULERA [Concomitant]
     Active Substance: FORMOTEROL FUMARATE DIHYDRATE\MOMETASONE FUROATE
  25. ZOFRAN [Concomitant]
     Active Substance: ONDANSETRON HYDROCHLORIDE
     Route: 030
  26. FLEXERIL [Concomitant]
     Active Substance: CYCLOBENZAPRINE HYDROCHLORIDE

REACTIONS (6)
  - Wheezing [Unknown]
  - Drug ineffective [Unknown]
  - Bronchitis [Unknown]
  - Chronic obstructive pulmonary disease [Unknown]
  - Oral candidiasis [Recovering/Resolving]
  - Product taste abnormal [Unknown]

NARRATIVE: CASE EVENT DATE: 2013
